FAERS Safety Report 8969647 (Version 2)
Quarter: 2012Q4

REPORT INFORMATION
  Report Type: 
  Country: JP (occurrence: JP)
  Receive Date: 20121218
  Receipt Date: 20121231
  Transmission Date: 20130627
  Serious: Yes (Other)
  Sender: FDA-Public Use
  Company Number: PHHY2012JP106069

PATIENT
  Age: 8 Year
  Sex: Female

DRUGS (2)
  1. TASIGNA [Suspect]
     Indication: CHRONIC MYELOID LEUKAEMIA
     Dosage: 300 mg/day
     Route: 048
     Dates: start: 20121004, end: 20121115
  2. GLIVEC [Suspect]

REACTIONS (1)
  - Liver disorder [Not Recovered/Not Resolved]
